FAERS Safety Report 23127549 (Version 2)
Quarter: 2023Q4

REPORT INFORMATION
  Report Type: Spontaneous
  Country: AU (occurrence: AU)
  Receive Date: 20231031
  Receipt Date: 20231117
  Transmission Date: 20240109
  Serious: Yes (Hospitalization, Other)
  Sender: FDA-Public Use
  Company Number: AU-BRISTOL-MYERS SQUIBB COMPANY-2023-152779

PATIENT

DRUGS (1)
  1. ELIQUIS [Suspect]
     Active Substance: APIXABAN
     Indication: Product used for unknown indication
     Dosage: DOSE : 5 MG;     FREQ : TWICE DAILY

REACTIONS (4)
  - Cardiac murmur [Unknown]
  - Prostate cancer [Unknown]
  - Prostatic haemorrhage [Recovering/Resolving]
  - Renal impairment [Unknown]
